FAERS Safety Report 20365217 (Version 3)
Quarter: 2023Q1

REPORT INFORMATION
  Report Type: Report from Study
  Country: CN (occurrence: None)
  Receive Date: 20220122
  Receipt Date: 20230123
  Transmission Date: 20230418
  Serious: Yes (Hospitalization)
  Sender: FDA-Public Use
  Company Number: CN-ROCHE-2957188

PATIENT
  Age: 67 Year
  Sex: Male
  Weight: 58.9 kg

DRUGS (33)
  1. ATEZOLIZUMAB [Suspect]
     Active Substance: ATEZOLIZUMAB
     Indication: Thymic carcinoma
     Dosage: DATE OF MOST RECENT DOSE OF DRUG- 28/OCT/2021?DATE OF MOST RECENT DOSE OF DRUG-30/DEC/2021
     Route: 041
     Dates: start: 20211007
  2. ASPIRIN [Concomitant]
     Active Substance: ASPIRIN
     Dates: start: 2011
  3. ATORVASTATIN [Concomitant]
     Active Substance: ATORVASTATIN
     Dates: start: 2011
  4. METOPROLOL SUCCINATE [Concomitant]
     Active Substance: METOPROLOL SUCCINATE
     Dates: start: 202106
  5. AMLODIPINE BESYLATE [Concomitant]
     Active Substance: AMLODIPINE BESYLATE
     Dates: start: 201112
  6. TAFLUPROST [Concomitant]
     Active Substance: TAFLUPROST
     Dates: start: 2017
  7. BRINZOLAMIDE [Concomitant]
     Active Substance: BRINZOLAMIDE
     Dates: start: 2017
  8. ESOMEPRAZOLE SODIUM [Concomitant]
     Active Substance: ESOMEPRAZOLE SODIUM
     Dates: start: 20211028, end: 20211028
  9. BICYCLOL [Concomitant]
     Active Substance: BICYCLOL
     Dates: start: 20211230, end: 20220107
  10. AMINOPHYLLINE\CHLORPHENIRAMINE MALEATE\METHOXYPHENAMINE HYDROCHLORIDE\ [Concomitant]
     Active Substance: AMINOPHYLLINE\CHLORPHENIRAMINE MALEATE\METHOXYPHENAMINE HYDROCHLORIDE\NOSCAPINE
     Dosage: TOTAL DAILY DOSE: 2 GRAIN
     Dates: start: 20220210, end: 20220217
  11. AMINOPHYLLINE\CHLORPHENIRAMINE MALEATE\METHOXYPHENAMINE HYDROCHLORIDE\ [Concomitant]
     Active Substance: AMINOPHYLLINE\CHLORPHENIRAMINE MALEATE\METHOXYPHENAMINE HYDROCHLORIDE\NOSCAPINE
     Dosage: TOTAL DAILY DOSE: 2 GRAIN
     Dates: start: 20220114, end: 20220117
  12. AMINOPHYLLINE\CHLORPHENIRAMINE MALEATE\METHOXYPHENAMINE HYDROCHLORIDE\ [Concomitant]
     Active Substance: AMINOPHYLLINE\CHLORPHENIRAMINE MALEATE\METHOXYPHENAMINE HYDROCHLORIDE\NOSCAPINE
     Dosage: TOTAL DAILY DOSE: 2 GRAIN
     Dates: start: 20220121, end: 20220202
  13. DOXOFYLLINE [Concomitant]
     Active Substance: DOXOFYLLINE
     Dates: start: 20220107, end: 20220114
  14. BROMHEXINE HYDROCHLORIDE [Concomitant]
     Active Substance: BROMHEXINE HYDROCHLORIDE
     Dates: start: 20220107, end: 20220114
  15. BUDESONIDE [Concomitant]
     Active Substance: BUDESONIDE
     Dosage: SUSPENSION FOR INHALATION
     Route: 055
     Dates: start: 20220107, end: 20220114
  16. BUDESONIDE [Concomitant]
     Active Substance: BUDESONIDE
     Dosage: SUSPENSION FOR INHALATION
     Route: 055
     Dates: start: 20220120, end: 20220124
  17. ACETYLCYSTEINE [Concomitant]
     Active Substance: ACETYLCYSTEINE
     Dosage: SOLUTION FOR INHALATION
     Route: 055
     Dates: start: 20220107, end: 20220114
  18. ACETYLCYSTEINE [Concomitant]
     Active Substance: ACETYLCYSTEINE
     Dosage: SOLUTION FOR INHALATION
     Route: 055
     Dates: start: 20220120, end: 20220124
  19. CEFOPERAZONE SODIUM\SULBACTAM SODIUM [Concomitant]
     Active Substance: CEFOPERAZONE SODIUM\SULBACTAM SODIUM
     Dates: start: 20220108, end: 20220114
  20. DOXOFYLLINE [Concomitant]
     Active Substance: DOXOFYLLINE
     Dates: start: 20220114, end: 20220117
  21. DOXOFYLLINE [Concomitant]
     Active Substance: DOXOFYLLINE
     Dates: start: 20220120, end: 20220124
  22. CEFETAMET PIVOXIL HYDROCHLORIDE [Concomitant]
     Dates: start: 20220114, end: 20220117
  23. BUDESONIDE [Concomitant]
     Active Substance: BUDESONIDE
     Dosage: SUSPENSION FOR INHALATION
     Route: 055
     Dates: start: 20220120, end: 20220124
  24. BUDESONIDE [Concomitant]
     Active Substance: BUDESONIDE
     Dosage: SUSPENSION FOR INHALATION
     Route: 055
     Dates: start: 20220107, end: 20220114
  25. ACETYLCYSTEINE [Concomitant]
     Active Substance: ACETYLCYSTEINE
     Dates: start: 20220124, end: 20220202
  26. ACETYLCYSTEINE [Concomitant]
     Active Substance: ACETYLCYSTEINE
     Dates: start: 20220210, end: 20220217
  27. COMPOUND EOSINOPHIL LACTOBACILLUS [Concomitant]
     Dates: start: 20220108, end: 20220114
  28. COMPOUND EOSINOPHIL LACTOBACILLUS [Concomitant]
     Dates: start: 20211020, end: 20211027
  29. GLYCYRRHIZIN [Concomitant]
     Active Substance: GLYCYRRHIZIN
     Dates: start: 20220114, end: 20220117
  30. OMEPRAZOLE SODIUM [Concomitant]
     Active Substance: OMEPRAZOLE SODIUM
     Dates: start: 20220224, end: 20220224
  31. LEUCOGEN [Concomitant]
     Active Substance: LEUCOGEN
     Dates: start: 20220511, end: 20220521
  32. ORYZ-ASPERGILLUS ENZYME AND PANCREATIN [Concomitant]
     Dates: start: 20211020, end: 20211027
  33. TESTA TRITICUM TRICUM PURIFY [Concomitant]
     Dates: start: 20211120, end: 20211127

REACTIONS (2)
  - Pneumonia [Not Recovered/Not Resolved]
  - Colitis [Not Recovered/Not Resolved]

NARRATIVE: CASE EVENT DATE: 20211018
